FAERS Safety Report 4627727-0 (Version None)
Quarter: 2005Q2

REPORT INFORMATION
  Report Type: 
  Country: None (occurrence: None)
  Receive Date: 20050401
  Receipt Date: 20050318
  Transmission Date: 20051028
  Serious: Yes (Life-Threatening, Hospitalization)
  Sender: FDA-Public Use
  Company Number: DSA_26185_2005

PATIENT
  Age: 73 Year
  Sex: Male
  Weight: 54 kg

DRUGS (11)
  1. RENIVACE [Suspect]
     Indication: MYOCARDIAL INFARCTION
     Dosage: 5 MG Q DAY PO
     Route: 048
     Dates: start: 19960101, end: 20050316
  2. RENIVACE [Suspect]
     Indication: PROPHYLAXIS
     Dosage: 5 MG Q DAY PO
     Route: 048
     Dates: start: 19960101, end: 20050316
  3. ANPLAG [Suspect]
     Indication: PROPHYLAXIS
     Dosage: 1 DF TID PO
     Route: 048
     Dates: start: 20050304, end: 20050316
  4. ANPLAG [Suspect]
     Indication: PROPHYLAXIS
     Dosage: 1 DF TID PO
     Route: 048
     Dates: start: 20050317
  5. ITOROL [Concomitant]
  6. SIGMART [Concomitant]
  7. ASPIRIN [Concomitant]
  8. GASTER D [Concomitant]
  9. NITRODERM [Concomitant]
  10. AMOBAN [Concomitant]
  11. MAGNESIUM OXIDE [Concomitant]

REACTIONS (11)
  - ANGIONEUROTIC OEDEMA [None]
  - BLOOD URINE PRESENT [None]
  - DYSPNOEA [None]
  - EPIGLOTTIC OEDEMA [None]
  - GENERAL PHYSICAL HEALTH DETERIORATION [None]
  - INFLAMMATION [None]
  - LARYNGEAL OEDEMA [None]
  - OBSTRUCTIVE AIRWAYS DISORDER [None]
  - ODYNOPHAGIA [None]
  - RASH [None]
  - SENSATION OF FOREIGN BODY [None]
